FAERS Safety Report 10572437 (Version 1)
Quarter: 2014Q4

REPORT INFORMATION
  Report Type: Report from Study
  Country: CA (occurrence: CA)
  Receive Date: 20141110
  Receipt Date: 20141110
  Transmission Date: 20150529
  Serious: Yes (Other)
  Sender: FDA-Public Use
  Company Number: CA-ROCHE-1486973

PATIENT
  Age: 53 Year
  Sex: Male

DRUGS (2)
  1. COPEGUS [Suspect]
     Active Substance: RIBAVIRIN
     Indication: CHRONIC HEPATITIS C
     Dosage: 42 TABLET/WEEK; ON 23/SEP/2014, HE RECEIVED LAST DOSE OF RIBAVIRIN
     Route: 048
     Dates: start: 20140521
  2. PEGASYS [Suspect]
     Active Substance: PEGINTERFERON ALFA-2A
     Indication: CHRONIC HEPATITIS C
     Dosage: 0.5 ML PRE-FILLED SYRINGE; ON 23/SEP/2014, HE RECEIVED LAST DOSE OF PEG-INTERFERON ALFA 2A
     Route: 058
     Dates: start: 20140521

REACTIONS (1)
  - Feeling abnormal [Unknown]

NARRATIVE: CASE EVENT DATE: 20141104
